FAERS Safety Report 5981207-9 (Version None)
Quarter: 2008Q4

REPORT INFORMATION
  Report Type: 
  Country: None (occurrence: None)
  Receive Date: 20081205
  Receipt Date: 20081201
  Transmission Date: 20090506
  Serious: Yes (Other)
  Sender: FDA-Public Use
  Company Number: B0548838A

PATIENT
  Age: 48 Year
  Sex: Female

DRUGS (2)
  1. ZOFRAN [Suspect]
     Dosage: 8MG AS REQUIRED
     Route: 042
     Dates: start: 20081110, end: 20081110
  2. PACLITAXEL [Suspect]
     Indication: BREAST CANCER
     Route: 042
     Dates: start: 20081110, end: 20081110

REACTIONS (1)
  - HYPERTENSIVE CRISIS [None]
